FAERS Safety Report 8053242-0 (Version None)
Quarter: 2012Q1

REPORT INFORMATION
  Report Type: 
  Country: None (occurrence: None)
  Receive Date: 20120118
  Receipt Date: 20120109
  Transmission Date: 20120608
  Serious: Yes (Hospitalization, Other)
  Sender: FDA-Public Use
  Company Number: US-BAYER-2011-038445

PATIENT
  Age: 29 Year
  Sex: Female
  Weight: 61.224 kg

DRUGS (15)
  1. LAMISIL [Concomitant]
     Dosage: 250 MG, QD
  2. YASMIN [Suspect]
     Indication: CONTRACEPTION
  3. DROSPIRENONE AND ETHINYL ESTRADIOL [Suspect]
     Indication: ACNE
  4. DROSPIRENONE AND ETHINYL ESTRADIOL [Suspect]
     Indication: PREMENSTRUAL SYNDROME
  5. YAZ [Suspect]
     Indication: PREMENSTRUAL SYNDROME
  6. YAZ [Suspect]
  7. DROSPIRENONE AND ETHINYL ESTRADIOL [Suspect]
  8. YASMIN [Suspect]
  9. YAZ [Suspect]
     Indication: ACNE
  10. ZOLOFT [Concomitant]
     Dosage: 50 MG, UNK
  11. DROSPIRENONE AND ETHINYL ESTRADIOL [Suspect]
     Indication: CONTRACEPTION
     Dosage: UNK
     Dates: start: 20081101, end: 20091001
  12. CLARITIN-D [Concomitant]
     Dosage: UNK UNK, QD
  13. YASMIN [Suspect]
     Indication: ACNE
  14. YAZ [Suspect]
     Indication: CONTRACEPTION
  15. YASMIN [Suspect]
     Indication: PREMENSTRUAL SYNDROME

REACTIONS (9)
  - ANXIETY [None]
  - PAIN [None]
  - PANCREATITIS [None]
  - ANHEDONIA [None]
  - FEAR [None]
  - GALLBLADDER INJURY [None]
  - CHOLELITHIASIS [None]
  - QUALITY OF LIFE DECREASED [None]
  - EMOTIONAL DISTRESS [None]
